FAERS Safety Report 11865271 (Version 1)
Quarter: 2015Q4

REPORT INFORMATION
  Report Type: Spontaneous
  Country: FR (occurrence: FR)
  Receive Date: 20151223
  Receipt Date: 20151223
  Transmission Date: 20160305
  Serious: Yes (Hospitalization, Other)
  Sender: FDA-Public Use
  Company Number: FR-PFIZER INC-2015454470

PATIENT
  Age: 39 Year
  Sex: Female
  Weight: 89 kg

DRUGS (12)
  1. TERCIAN [Suspect]
     Active Substance: CYAMEMAZINE
     Dosage: UNK; SINGLE DOSE
     Route: 048
     Dates: start: 20151007, end: 20151007
  2. IMOVANE [Suspect]
     Active Substance: ZOPICLONE
     Dosage: 1 DF DAILY (AT BEDTIME)
     Route: 048
  3. SEROPLEX [Suspect]
     Active Substance: ESCITALOPRAM OXALATE
     Dosage: UNK
     Route: 048
     Dates: start: 2015
  4. IMOVANE [Suspect]
     Active Substance: ZOPICLONE
     Dosage: UNK, SINGLE
     Route: 048
     Dates: start: 20151007, end: 20151007
  5. TERCIAN [Suspect]
     Active Substance: CYAMEMAZINE
     Dosage: UNK
     Route: 048
     Dates: start: 2015
  6. XANAX [Suspect]
     Active Substance: ALPRAZOLAM
     Dosage: UNK
     Route: 048
     Dates: start: 2015
  7. IMOVANE [Suspect]
     Active Substance: ZOPICLONE
     Dosage: UNK
     Route: 048
     Dates: start: 2015
  8. XANAX [Suspect]
     Active Substance: ALPRAZOLAM
     Dosage: 0.5 MG, 4 DOSAGE FORMS (DF) A DAY
     Route: 048
  9. XANAX [Suspect]
     Active Substance: ALPRAZOLAM
     Dosage: UNK, SINGLE
     Route: 048
     Dates: start: 20151007, end: 20151007
  10. SEROPLEX [Suspect]
     Active Substance: ESCITALOPRAM OXALATE
     Dosage: UNK SINGLE DOSE
     Route: 048
     Dates: start: 20151007, end: 20151007
  11. TERCIAN [Suspect]
     Active Substance: CYAMEMAZINE
     Dosage: 25 MG 1 DF DAILY (EVENING)
     Route: 048
  12. SEROPLEX [Suspect]
     Active Substance: ESCITALOPRAM OXALATE
     Dosage: 20 MG 1 DF DAILY (MORNING)
     Route: 048

REACTIONS (3)
  - Malaise [Recovered/Resolved]
  - Toxicity to various agents [Recovered/Resolved]
  - Suicide attempt [Recovered/Resolved]

NARRATIVE: CASE EVENT DATE: 20151007
